FAERS Safety Report 17990143 (Version 1)
Quarter: 2020Q3

REPORT INFORMATION
  Report Type: Spontaneous
  Country: ES (occurrence: ES)
  Receive Date: 20200707
  Receipt Date: 20200707
  Transmission Date: 20201103
  Serious: Yes (Hospitalization)
  Sender: FDA-Public Use
  Company Number: ES-ROCHE-2635330

PATIENT
  Age: 16 Year
  Sex: Male

DRUGS (3)
  1. OLANZAPINA [Interacting]
     Active Substance: OLANZAPINE
     Indication: ANXIETY
     Route: 030
     Dates: start: 20200310, end: 20200310
  2. OLANZAPINA [Interacting]
     Active Substance: OLANZAPINE
     Route: 048
     Dates: start: 20200310, end: 20200310
  3. DIAZEPAM. [Suspect]
     Active Substance: DIAZEPAM
     Indication: ANXIETY
     Route: 048
     Dates: start: 20200309

REACTIONS (2)
  - Bradycardia [Recovered/Resolved]
  - Ventricular extrasystoles [Recovered/Resolved]

NARRATIVE: CASE EVENT DATE: 20200310
